FAERS Safety Report 4888271-9 (Version None)
Quarter: 2006Q1

REPORT INFORMATION
  Report Type: 
  Country: None (occurrence: None)
  Receive Date: 20060119
  Receipt Date: 20051230
  Transmission Date: 20060701
  Serious: Yes (Hospitalization, Other)
  Sender: FDA-Public Use
  Company Number: TRP_0680_2005

PATIENT
  Age: 31 Year
  Sex: Female
  Weight: 104.3273 kg

DRUGS (12)
  1. RIBASPHERE [Suspect]
     Indication: HEPATITIS C
     Dosage: DF PO
     Route: 048
     Dates: start: 20050926
  2. PEG-INTRON [Suspect]
     Indication: HEPATITIS C
     Dosage: DF SC
     Route: 058
     Dates: start: 20050926
  3. NEURONTIN [Concomitant]
  4. PIROXICAM [Concomitant]
  5. PROZAC [Concomitant]
  6. RANITIDINE HYDROCHLORIDE [Concomitant]
  7. EXTRA STRENGTH TYLENOL [Concomitant]
  8. GEODON [Concomitant]
  9. KLONOPIN [Concomitant]
  10. METFORMIN HYDROCHLORIDE [Concomitant]
  11. TEMAZEPAM [Concomitant]
  12. ABILIFY [Concomitant]

REACTIONS (5)
  - DEPRESSION [None]
  - INSOMNIA [None]
  - MANIA [None]
  - VOMITING [None]
  - WEIGHT DECREASED [None]
